FAERS Safety Report 9904623 (Version 1)
Quarter: 2014Q1

REPORT INFORMATION
  Report Type: Spontaneous
  Country: GB (occurrence: GB)
  Receive Date: 20140218
  Receipt Date: 20140218
  Transmission Date: 20141002
  Serious: Yes (Other)
  Sender: FDA-Public Use
  Company Number: GB-TEVA-461745ISR

PATIENT
  Age: 27 Year
  Sex: Female
  Weight: 60 kg

DRUGS (8)
  1. AMITRIPTYLINE [Suspect]
     Indication: MIGRAINE
     Route: 048
     Dates: start: 20131001
  2. AMITRIPTYLINE [Suspect]
     Indication: MIGRAINE
     Route: 048
     Dates: start: 201311
  3. AMITRIPTYLINE [Suspect]
     Indication: MIGRAINE
     Route: 048
     Dates: start: 201312
  4. CODEINE PHOSPHATE [Concomitant]
  5. PARACETAMOL [Concomitant]
  6. RIZATRIPTAN BENZOATE [Concomitant]
  7. NAPROXEN [Concomitant]
  8. IBUPROFEN [Concomitant]

REACTIONS (3)
  - Somnolence [Not Recovered/Not Resolved]
  - Paraesthesia [Not Recovered/Not Resolved]
  - Dyspnoea [Not Recovered/Not Resolved]
